FAERS Safety Report 5436706-5 (Version None)
Quarter: 2007Q3

REPORT INFORMATION
  Report Type: 
  Country: None (occurrence: None)
  Receive Date: 20070831
  Receipt Date: 20070822
  Transmission Date: 20080115
  Serious: Yes (Hospitalization)
  Sender: FDA-Public Use
  Company Number: US-JNJFOC-20070804598

PATIENT
  Age: 43 Year
  Sex: Male

DRUGS (14)
  1. PREZISTA [Suspect]
     Indication: HIV INFECTION
     Route: 048
  2. KALETRA [Suspect]
     Indication: HIV INFECTION
     Route: 065
  3. RITONAVIR [Suspect]
     Indication: HIV INFECTION
     Route: 065
  4. MK-0518 [Suspect]
     Indication: HIV INFECTION
     Route: 065
  5. TRUVADA [Suspect]
     Indication: HIV INFECTION
     Route: 065
  6. ENFUVIRTIDE [Suspect]
     Indication: HIV INFECTION
     Route: 065
  7. COMBIVIR [Suspect]
     Indication: HIV INFECTION
     Route: 065
  8. TENOFOVIR DISOPROXIL FUMARATE [Suspect]
     Indication: HIV INFECTION
     Route: 065
  9. AZITHROMYCIN [Concomitant]
     Route: 065
  10. DAPSONE [Concomitant]
     Route: 065
  11. FERROUS SULFATE TAB [Concomitant]
     Route: 065
  12. DIFLUCAN [Concomitant]
     Route: 065
  13. NAPROSYN [Concomitant]
     Route: 065
  14. LANTUS [Concomitant]
     Route: 065

REACTIONS (10)
  - ADRENAL INSUFFICIENCY [None]
  - DEHYDRATION [None]
  - DIARRHOEA [None]
  - HEADACHE [None]
  - HYPOTENSION [None]
  - LIVER FUNCTION TEST ABNORMAL [None]
  - NAUSEA [None]
  - PYREXIA [None]
  - RENAL FAILURE ACUTE [None]
  - SEPSIS [None]
